FAERS Safety Report 16960252 (Version 3)
Quarter: 2019Q4

REPORT INFORMATION
  Report Type: Spontaneous
  Country: JP (occurrence: JP)
  Receive Date: 20191025
  Receipt Date: 20191114
  Transmission Date: 20200122
  Serious: Yes (Death, Other)
  Sender: FDA-Public Use
  Company Number: JP-ROCHE-2450254

PATIENT
  Age: 5 Decade
  Sex: Male

DRUGS (2)
  1. OXALIPLATIN. [Concomitant]
     Active Substance: OXALIPLATIN
     Indication: CARCINOID TUMOUR OF THE APPENDIX
     Dosage: UNCERTAIN DOSAGE AND FOUR COURSE EXECUTION
     Route: 041
  2. XELODA [Suspect]
     Active Substance: CAPECITABINE
     Indication: CARCINOID TUMOUR OF THE APPENDIX
     Dosage: UNCERTAIN DOSAGE AND FOUR COURSE EXECUTION
     Route: 048

REACTIONS (5)
  - Off label use [Unknown]
  - Carcinoid tumour of the appendix [Fatal]
  - Ascites [Unknown]
  - Intentional product use issue [Unknown]
  - Blood bilirubin increased [Unknown]
